FAERS Safety Report 5872997-4 (Version None)
Quarter: 2008Q3

REPORT INFORMATION
  Report Type: 
  Country: None (occurrence: None)
  Receive Date: 20080903
  Receipt Date: 20080818
  Transmission Date: 20090109
  Serious: Yes (Other)
  Sender: FDA-Public Use
  Company Number: DSA_62205_2008

PATIENT
  Age: 58 Year
  Sex: Female
  Weight: 59.8748 kg

DRUGS (10)
  1. MYSOLINE [Suspect]
     Indication: CONVULSION
     Dosage: 50 MG 5 X/DAY ORAL
     Route: 048
  2. MYSOLINE [Suspect]
     Indication: CONVULSION
     Dosage: 250 MG TID ORAL, 250 MG TID ORAL
     Route: 048
  3. DILANTIN /0007401/ [Concomitant]
  4. LORAZEPAM [Concomitant]
  5. NEXIUM /01479392/. [Concomitant]
  6. TRICOR [Concomitant]
  7. ZYPREXA [Concomitant]
  8. CARVEDILOL [Concomitant]
  9. ALBUTEROL [Concomitant]
  10. IBUPROFEN [Concomitant]

REACTIONS (8)
  - CONVULSION [None]
  - DECREASED ACTIVITY [None]
  - DIZZINESS [None]
  - DYSPHAGIA [None]
  - FEELING ABNORMAL [None]
  - PHARMACEUTICAL PRODUCT COMPLAINT [None]
  - VISUAL IMPAIRMENT [None]
  - WITHDRAWAL SYNDROME [None]
